FAERS Safety Report 6561495-0 (Version None)
Quarter: 2010Q1

REPORT INFORMATION
  Report Type: 
  Country: None (occurrence: None)
  Receive Date: 20100130
  Receipt Date: 20091015
  Transmission Date: 20100710
  Serious: No
  Sender: FDA-Public Use
  Company Number: US-ABBOTT-09P-163-0603639-00

PATIENT
  Sex: Female
  Weight: 79.45 kg

DRUGS (5)
  1. HUMIRA [Suspect]
     Indication: RHEUMATOID ARTHRITIS
     Route: 058
     Dates: start: 20090501, end: 20090901
  2. CALTRATE W/D [Concomitant]
     Indication: MINERAL SUPPLEMENTATION
     Route: 048
     Dates: end: 20090915
  3. MULTI-VITAMIN [Concomitant]
     Indication: VITAMIN SUPPLEMENTATION
     Route: 048
     Dates: end: 20090915
  4. ARAVA [Concomitant]
     Indication: RHEUMATOID ARTHRITIS
     Route: 048
     Dates: start: 20090920
  5. ARAVA [Concomitant]
     Route: 048

REACTIONS (6)
  - ANXIETY [None]
  - DIARRHOEA [None]
  - FATIGUE [None]
  - GASTRITIS [None]
  - OESOPHAGITIS [None]
  - THROAT TIGHTNESS [None]
